FAERS Safety Report 21208472 (Version 1)
Quarter: 2022Q3

REPORT INFORMATION
  Report Type: Spontaneous
  Country: US (occurrence: None)
  Receive Date: 20220811
  Receipt Date: 20220811
  Transmission Date: 20221027
  Serious: Yes (Hospitalization)
  Sender: FDA-Public Use
  Company Number: None

PATIENT
  Sex: Female

DRUGS (1)
  1. ENBREL [Suspect]
     Active Substance: ETANERCEPT
     Indication: Sjogren^s syndrome
     Dosage: FREQUENCY : WEEKLY;?
     Route: 058
     Dates: start: 20201222

REACTIONS (1)
  - Arthropathy [None]
